FAERS Safety Report 9122846 (Version 1)
Quarter: 2013Q1

REPORT INFORMATION
  Report Type: Report from Study
  Country: BE (occurrence: BE)
  Receive Date: 20130115
  Receipt Date: 20130115
  Transmission Date: 20140127
  Serious: Yes (Other)
  Sender: FDA-Public Use
  Company Number: BE-ROCHE-1178076

PATIENT
  Age: 35 Year
  Sex: Female
  Weight: 65 kg

DRUGS (6)
  1. ADO-TRASTUZUMAB EMTANSINE [Suspect]
     Indication: BREAST CANCER
     Dosage: CYCLE 3 TO 6, 160 MG SINGLE USE VIAL.
     Route: 042
  2. CAPECITABINE [Suspect]
     Indication: BREAST CANCER METASTATIC
     Route: 065
     Dates: start: 201209
  3. TRASTUZUMAB [Suspect]
     Indication: BREAST CANCER
     Route: 065
     Dates: start: 201107
  4. TRASTUZUMAB [Suspect]
     Route: 065
     Dates: start: 201201
  5. LAPATINIB DITOSYLATE [Suspect]
     Indication: BREAST CANCER METASTATIC
     Route: 065
     Dates: start: 201209
  6. PACLITAXEL [Suspect]
     Indication: BREAST CANCER METASTATIC
     Route: 065
     Dates: start: 201210

REACTIONS (3)
  - Breast cancer metastatic [Unknown]
  - Breast cancer metastatic [Unknown]
  - Disease progression [Unknown]
